FAERS Safety Report 17339584 (Version 2)
Quarter: 2020Q1

REPORT INFORMATION
  Report Type: Spontaneous
  Country: JP (occurrence: JP)
  Receive Date: 20200129
  Receipt Date: 20200220
  Transmission Date: 20200409
  Serious: Yes (Other)
  Sender: FDA-Public Use
  Company Number: JP-CELGENEUS-JPN-20200109086

PATIENT
  Age: 7 Decade
  Sex: Female

DRUGS (1)
  1. OTEZLA [Suspect]
     Active Substance: APREMILAST
     Indication: MOUTH ULCERATION
     Dosage: UPWARD TITRATION
     Route: 048
     Dates: start: 201912

REACTIONS (1)
  - Liver disorder [Unknown]
